FAERS Safety Report 17242373 (Version 1)
Quarter: 2020Q1

REPORT INFORMATION
  Report Type: Spontaneous
  Country: US (occurrence: US)
  Receive Date: 20200106
  Receipt Date: 20200106
  Transmission Date: 20200409
  Serious: Yes (Other)
  Sender: FDA-Public Use
  Company Number: None

PATIENT
  Age: 36 Year
  Sex: Female

DRUGS (2)
  1. MAKENA [Suspect]
     Active Substance: HYDROXYPROGESTERONE CAPROATE
     Indication: POSTPONEMENT OF PRETERM DELIVERY
     Dosage: ?          OTHER FREQUENCY:ONCE WEEKLY;?
     Route: 058
     Dates: start: 20191128, end: 20191226
  2. HYDROXYPROGESTERONE CAPROATE 250 MG INTRAMUSCULAR OIL [Concomitant]
     Dates: start: 20191114, end: 20191121

REACTIONS (6)
  - Skin warm [None]
  - Pain [None]
  - Erythema [None]
  - Injection site swelling [None]
  - Injection site reaction [None]
  - Carpal tunnel syndrome [None]

NARRATIVE: CASE EVENT DATE: 20191212
